FAERS Safety Report 15099459 (Version 2)
Quarter: 2018Q3

REPORT INFORMATION
  Report Type: Report from Study
  Country: US (occurrence: US)
  Receive Date: 20180702
  Receipt Date: 20180711
  Transmission Date: 20181010
  Serious: Yes (Hospitalization)
  Sender: FDA-Public Use
  Company Number: US-ACTELION-A-NJ2017-155873

PATIENT
  Age: 38 Year
  Sex: Female

DRUGS (13)
  1. UPTRAVI [Suspect]
     Active Substance: SELEXIPAG
     Dosage: 1200 MCG, BID
     Route: 048
     Dates: start: 20160603
  2. GABAPENTIN. [Concomitant]
     Active Substance: GABAPENTIN
  3. LEXAPRO [Concomitant]
     Active Substance: ESCITALOPRAM OXALATE
  4. WARFARIN [Concomitant]
     Active Substance: WARFARIN
  5. ADEMPAS [Concomitant]
     Active Substance: RIOCIGUAT
  6. XANAX [Concomitant]
     Active Substance: ALPRAZOLAM
  7. OXYGEN. [Concomitant]
     Active Substance: OXYGEN
  8. ADCIRCA [Concomitant]
     Active Substance: TADALAFIL
  9. UPTRAVI [Suspect]
     Active Substance: SELEXIPAG
     Indication: PULMONARY ARTERIAL HYPERTENSION
     Dosage: 1600 MCG, BID
     Route: 048
     Dates: start: 20170120
  10. POTASSIUM [Concomitant]
     Active Substance: POTASSIUM
  11. UPTRAVI [Suspect]
     Active Substance: SELEXIPAG
     Dosage: 1400 MCG, BID
     Route: 048
     Dates: start: 20160602
  12. OPSUMIT [Suspect]
     Active Substance: MACITENTAN
     Indication: PULMONARY ARTERIAL HYPERTENSION
     Dosage: 10 MG, QD
     Route: 048
     Dates: start: 20170124
  13. IRON [Concomitant]
     Active Substance: IRON

REACTIONS (8)
  - Pain in jaw [Not Recovered/Not Resolved]
  - Fatigue [Not Recovered/Not Resolved]
  - Hospitalisation [Unknown]
  - Sensitivity to weather change [Unknown]
  - Myalgia [Not Recovered/Not Resolved]
  - Headache [Unknown]
  - Malaise [Unknown]
  - Pain [Unknown]

NARRATIVE: CASE EVENT DATE: 20170621
